FAERS Safety Report 5085867-9 (Version None)
Quarter: 2006Q3

REPORT INFORMATION
  Report Type: 
  Country: None (occurrence: None)
  Receive Date: 20060817
  Receipt Date: 20050712
  Transmission Date: 20061208
  Serious: Yes (Hospitalization)
  Sender: FDA-Public Use
  Company Number: I03-341-027

PATIENT
  Age: 75 Year
  Sex: Male

DRUGS (1)
  1. VELCADE [Suspect]
     Indication: MANTLE CELL LYMPHOMA
     Dosage: 2.55 MG BIW; IV BOLUS
     Route: 040
     Dates: start: 20021119

REACTIONS (4)
  - DISEASE PROGRESSION [None]
  - METASTASES TO PLEURA [None]
  - NEPHROTIC SYNDROME [None]
  - PULMONARY OEDEMA [None]
